FAERS Safety Report 6925773-5 (Version None)
Quarter: 2010Q3

REPORT INFORMATION
  Report Type: 
  Country: None (occurrence: None)
  Receive Date: 20100816
  Receipt Date: 20100805
  Transmission Date: 20110219
  Serious: Yes (Death, Hospitalization)
  Sender: FDA-Public Use
  Company Number: B0624816A

PATIENT
  Sex: Female
  Weight: 45 kg

DRUGS (8)
  1. TYKERB [Suspect]
     Indication: BREAST CANCER
     Dosage: 1250MG PER DAY
     Route: 048
     Dates: start: 20091209, end: 20100122
  2. XELODA [Concomitant]
     Dosage: 2400MG PER DAY
     Route: 048
     Dates: start: 20091209, end: 20100122
  3. URSO 250 [Concomitant]
     Indication: HEPATIC FUNCTION ABNORMAL
     Route: 048
     Dates: end: 20100104
  4. LOXONIN [Concomitant]
     Indication: BACK PAIN
     Route: 048
     Dates: start: 20091209, end: 20100112
  5. MUCOSTA [Concomitant]
     Indication: GASTRITIS PROPHYLAXIS
     Route: 048
     Dates: start: 20091209, end: 20100112
  6. KADIAN [Concomitant]
     Route: 048
     Dates: start: 20100105, end: 20100301
  7. FUROSEMIDE [Concomitant]
     Route: 048
     Dates: start: 20100112, end: 20100301
  8. FUROSEMIDE [Concomitant]
     Dates: start: 20100112, end: 20100301

REACTIONS (6)
  - ASCITES [None]
  - CONSTIPATION [None]
  - ILEUS [None]
  - MALAISE [None]
  - NAUSEA [None]
  - PYREXIA [None]
